FAERS Safety Report 16772424 (Version 1)
Quarter: 2019Q4

REPORT INFORMATION
  Report Type: Spontaneous
  Country: US (occurrence: US)
  Receive Date: 20190904
  Receipt Date: 20190904
  Transmission Date: 20200122
  Serious: Yes (Life-Threatening, Hospitalization)
  Sender: FDA-Public Use
  Company Number: None

PATIENT
  Age: 65 Year
  Sex: Male
  Weight: 79.65 kg

DRUGS (1)
  1. GEMCITABINE. [Suspect]
     Active Substance: GEMCITABINE
     Indication: GASTROINTESTINAL CARCINOMA
     Dosage: ?          OTHER FREQUENCY:ONCE A WEEK;?
     Route: 041
     Dates: start: 20190116, end: 20190516

REACTIONS (7)
  - Blood antidiuretic hormone increased [None]
  - Anaemia [None]
  - Coombs direct test negative [None]
  - Acute kidney injury [None]
  - Thrombocytopenia [None]
  - Fluid retention [None]
  - Haptoglobin decreased [None]

NARRATIVE: CASE EVENT DATE: 20190613
